FAERS Safety Report 11799179 (Version 1)
Quarter: 2015Q4

REPORT INFORMATION
  Report Type: Report from Study
  Country: US (occurrence: US)
  Receive Date: 20151203
  Receipt Date: 20151203
  Transmission Date: 20160305
  Serious: Yes (Other)
  Sender: FDA-Public Use
  Company Number: US-AMGEN-USASL2015121505

PATIENT
  Age: 62 Year
  Sex: Female

DRUGS (2)
  1. ATENOLOL. [Concomitant]
     Active Substance: ATENOLOL
     Dosage: 25 MG, QD
     Route: 065
  2. REPATHA [Suspect]
     Active Substance: EVOLOCUMAB
     Indication: PRODUCT USED FOR UNKNOWN INDICATION
     Dosage: 140 MG, Q2WK
     Route: 065
     Dates: start: 201509

REACTIONS (1)
  - Blood pressure increased [Unknown]
